FAERS Safety Report 6314829-6 (Version None)
Quarter: 2009Q3

REPORT INFORMATION
  Report Type: 
  Country: None (occurrence: None)
  Receive Date: 20090819
  Receipt Date: 20090806
  Transmission Date: 20100115
  Serious: Yes (Hospitalization)
  Sender: FDA-Public Use
  Company Number: JP-PFIZER INC-2009229490

PATIENT
  Age: 47 Year

DRUGS (11)
  1. MIGLITOL [Suspect]
     Indication: DIABETES MELLITUS
     Dosage: UNK MG, UNK
     Route: 048
     Dates: start: 20090604, end: 20090612
  2. MEROPEN [Suspect]
     Indication: EPIDIDYMITIS
     Route: 065
  3. FAROM [Suspect]
     Indication: PYREXIA
     Dosage: UNK
     Route: 065
     Dates: start: 20090508, end: 20090530
  4. FAROM [Suspect]
     Indication: EPIDIDYMITIS
  5. LOXONIN [Suspect]
     Indication: PAIN
     Dosage: UNK
     Route: 065
     Dates: start: 20090514, end: 20090530
  6. MYSLEE [Suspect]
     Indication: INSOMNIA
     Dosage: UNK
     Route: 065
     Dates: start: 20090517, end: 20090530
  7. PURSENNID [Suspect]
     Indication: CONSTIPATION
     Dosage: UNK
     Route: 065
     Dates: start: 20090517, end: 20090530
  8. AMARYL [Concomitant]
     Indication: TYPE 2 DIABETES MELLITUS
     Dosage: 1 MG, UNK
     Route: 048
     Dates: start: 20090601, end: 20090612
  9. AMARYL [Concomitant]
     Dosage: 1 MG, UNK
     Route: 048
     Dates: start: 20090602, end: 20090612
  10. NOVORAPID [Concomitant]
     Indication: TYPE 2 DIABETES MELLITUS
     Dosage: 36 IU, UNK
     Route: 058
     Dates: start: 20090414
  11. LANTUS [Concomitant]
     Indication: TYPE 2 DIABETES MELLITUS
     Dosage: 14 IU, UNK
     Route: 058
     Dates: start: 20090414

REACTIONS (3)
  - ALANINE AMINOTRANSFERASE INCREASED [None]
  - ASPARTATE AMINOTRANSFERASE INCREASED [None]
  - HEPATIC FUNCTION ABNORMAL [None]
